FAERS Safety Report 5774144-6 (Version None)
Quarter: 2008Q2

REPORT INFORMATION
  Report Type: 
  Country: None (occurrence: None)
  Receive Date: 20080616
  Receipt Date: 20080611
  Transmission Date: 20081010
  Serious: Yes (Hospitalization, Other)
  Sender: FDA-Public Use
  Company Number: FR-BRISTOL-MYERS SQUIBB COMPANY-13369350

PATIENT
  Age: 45 Year
  Sex: Female
  Weight: 56 kg

DRUGS (4)
  1. SUSTIVA [Suspect]
     Indication: HIV INFECTION
     Dosage: STOPPED  ON 20SEP04 AND RESTARTED ON 7MAR05-21JAN06; 11DEC06-ONGOING
     Route: 048
     Dates: start: 19990901
  2. VIRAMUNE [Concomitant]
     Indication: HIV INFECTION
     Dates: start: 20060121, end: 20060911
  3. EPIVER [Concomitant]
     Indication: HIV INFECTION
  4. KALETRA [Concomitant]
     Indication: HIV INFECTION

REACTIONS (7)
  - AMNESIA [None]
  - CONFUSIONAL STATE [None]
  - DELUSION [None]
  - HALLUCINATION [None]
  - HEPATIC CIRRHOSIS [None]
  - OPTIC NEURITIS [None]
  - SOMNOLENCE [None]
